FAERS Safety Report 25949655 (Version 2)
Quarter: 2025Q4

REPORT INFORMATION
  Report Type: Spontaneous
  Country: JP (occurrence: JP)
  Receive Date: 20251022
  Receipt Date: 20251126
  Transmission Date: 20260118
  Serious: Yes (Death)
  Sender: ABBVIE
  Company Number: JP-ABBVIE-6513669

PATIENT
  Age: 88 Year
  Sex: Male

DRUGS (2)
  1. RINVOQ [Suspect]
     Active Substance: UPADACITINIB
     Indication: Rheumatoid arthritis
     Dosage: FORM STRENGTH: 7.5 MILLIGRAM
     Route: 048
     Dates: start: 20240806
  2. RINVOQ [Suspect]
     Active Substance: UPADACITINIB
     Indication: Rheumatoid arthritis
     Dosage: FORM STRENGTH: 7.5 MILLIGRAM
     Route: 048
     Dates: end: 20251017

REACTIONS (3)
  - Respiratory failure [Fatal]
  - Chondrocalcinosis [Fatal]
  - Rheumatoid arthritis [Recovering/Resolving]

NARRATIVE: CASE EVENT DATE: 20250101
